FAERS Safety Report 8346571-4 (Version None)
Quarter: 2012Q2

REPORT INFORMATION
  Report Type: 
  Country: None (occurrence: None)
  Receive Date: 20120509
  Receipt Date: 20120502
  Transmission Date: 20120825
  Serious: Yes (Hospitalization)
  Sender: FDA-Public Use
  Company Number: PHHY2012IT038214

PATIENT
  Sex: Female

DRUGS (1)
  1. ILARIS [Suspect]
     Dosage: 150 MG, EVERY 6 WEEKS
     Route: 058
     Dates: start: 20090303, end: 20110816

REACTIONS (2)
  - NECROTISING PANNICULITIS [None]
  - STAPHYLOCOCCAL INFECTION [None]
